FAERS Safety Report 8928852 (Version 2)
Quarter: 2012Q4

REPORT INFORMATION
  Report Type: 
  Country: US (occurrence: US)
  Receive Date: 20121128
  Receipt Date: 20121219
  Transmission Date: 20130627
  Serious: Yes (Hospitalization)
  Sender: FDA-Public Use
  Company Number: US-009507513-1211USA010452

PATIENT
  Age: 58 Year
  Sex: Female

DRUGS (1)
  1. VICTRELIS [Suspect]
     Indication: HEPATITIS
     Dosage: 4 DF, tid
     Dates: start: 20120828, end: 20121115

REACTIONS (2)
  - White blood cell count decreased [Recovering/Resolving]
  - Drug ineffective [Unknown]
